FAERS Safety Report 14023390 (Version 5)
Quarter: 2018Q1

REPORT INFORMATION
  Report Type: Spontaneous
  Country: CA (occurrence: CA)
  Receive Date: 20170929
  Receipt Date: 20180205
  Transmission Date: 20180508
  Serious: Yes (Hospitalization)
  Sender: FDA-Public Use
  Company Number: CA-CELLTRION INC.-2017CA011285

PATIENT

DRUGS (8)
  1. VITAMIN D [Concomitant]
     Active Substance: CHOLECALCIFEROL
     Dosage: UNK
     Route: 065
  2. CALCIUM [Concomitant]
     Active Substance: CALCIUM
     Dosage: UNK
     Route: 065
  3. TYLENOL [Concomitant]
     Active Substance: ACETAMINOPHEN
     Dosage: UNK
     Route: 065
  4. HYDROMORPHONE HYDROCHLORIDE. [Concomitant]
     Active Substance: HYDROMORPHONE HYDROCHLORIDE
     Dosage: UNK
     Route: 065
  5. INFLECTRA [Suspect]
     Active Substance: INFLIXIMAB-DYYB
     Indication: CROHN^S DISEASE
     Dosage: 560 MG, EVERY 2, 6 WEEKS, THEN EVERY 12 WEEKS
     Route: 042
     Dates: start: 20170808, end: 2017
  6. RISPERDAL [Concomitant]
     Active Substance: RISPERIDONE
     Dosage: UNK
     Route: 065
  7. INFLECTRA [Suspect]
     Active Substance: INFLIXIMAB-DYYB
     Dosage: 568 MG, CYCLIC (EVERY 2, 6 WEEKS, THEN EVERY 12  WEEKS)
     Route: 042
     Dates: start: 20171128, end: 20171128
  8. INFLECTRA [Suspect]
     Active Substance: INFLIXIMAB-DYYB
     Dosage: 560 MG, CYCLIC (EVERY 8 WEEKS)
     Route: 042
     Dates: start: 20180124, end: 20180124

REACTIONS (17)
  - Nausea [Unknown]
  - Crohn^s disease [Unknown]
  - Condition aggravated [Unknown]
  - Fatigue [Not Recovered/Not Resolved]
  - Hypertension [Unknown]
  - Chest discomfort [Unknown]
  - Dizziness [Recovered/Resolved]
  - Headache [Recovered/Resolved]
  - Incorrect dose administered [Unknown]
  - Limb discomfort [Not Recovered/Not Resolved]
  - Headache [Recovered/Resolved]
  - Vomiting [Unknown]
  - Rash [Unknown]
  - Anxiety [Unknown]
  - Respiratory disorder [Unknown]
  - Insomnia [Not Recovered/Not Resolved]
  - Back pain [Not Recovered/Not Resolved]

NARRATIVE: CASE EVENT DATE: 2017
